FAERS Safety Report 7479728-5 (Version None)
Quarter: 2011Q2

REPORT INFORMATION
  Report Type: 
  Country: None (occurrence: None)
  Receive Date: 20110513
  Receipt Date: 20110504
  Transmission Date: 20111010
  Serious: Yes (Other)
  Sender: FDA-Public Use
  Company Number: US-ASTRAZENECA-2011SE05389

PATIENT
  Age: 64 Year
  Sex: Female

DRUGS (1)
  1. ARIMIDEX [Suspect]
     Route: 048

REACTIONS (8)
  - SWELLING [None]
  - ACARODERMATITIS [None]
  - LYMPHADENOPATHY [None]
  - PRURITUS [None]
  - DERMATITIS [None]
  - RASH [None]
  - OSTEOPENIA [None]
  - ARTHRITIS [None]
